FAERS Safety Report 16191948 (Version 1)
Quarter: 2019Q2

REPORT INFORMATION
  Report Type: Spontaneous
  Country: US (occurrence: US)
  Receive Date: 20190412
  Receipt Date: 20190412
  Transmission Date: 20190711
  Serious: Yes (Disabling, Other)
  Sender: FDA-Public Use
  Company Number: US-COOPERSURGICAL, INC.-US-2019CPS000984

PATIENT

DRUGS (1)
  1. PARAGARD T 380A [Suspect]
     Active Substance: COPPER
     Indication: CONTRACEPTION
     Dosage: UNK
     Route: 015
     Dates: start: 200802, end: 20170331

REACTIONS (13)
  - Foreign body in reproductive tract [Not Recovered/Not Resolved]
  - Economic problem [Unknown]
  - Complication of device removal [Not Recovered/Not Resolved]
  - Disability [Unknown]
  - Emotional distress [Unknown]
  - Impaired quality of life [Unknown]
  - Impaired self-care [Unknown]
  - Decreased interest [Unknown]
  - Injury [Unknown]
  - Pain [Unknown]
  - Device breakage [Not Recovered/Not Resolved]
  - Reproductive complication associated with device [Unknown]
  - Discomfort [Unknown]

NARRATIVE: CASE EVENT DATE: 20170331
